FAERS Safety Report 6894358-1 (Version None)
Quarter: 2010Q3

REPORT INFORMATION
  Report Type: 
  Country: None (occurrence: None)
  Receive Date: 20100802
  Receipt Date: 20071008
  Transmission Date: 20110219
  Serious: Yes (Other)
  Sender: FDA-Public Use
  Company Number: US-PFIZER INC-2007076601

PATIENT
  Sex: Female

DRUGS (4)
  1. CAMPTOSAR [Suspect]
  2. FLUOROURACIL [Suspect]
  3. LEUCOVORIN CALCIUM [Suspect]
  4. CLOZAPINE [Suspect]

REACTIONS (2)
  - GRANULOCYTOPENIA [None]
  - LEUKOPENIA [None]
